FAERS Safety Report 9107017 (Version 2)
Quarter: 2013Q1

REPORT INFORMATION
  Report Type: Spontaneous
  Country: AU (occurrence: AU)
  Receive Date: 20130221
  Receipt Date: 20130328
  Transmission Date: 20140127
  Serious: Yes (Hospitalization, Other)
  Sender: FDA-Public Use
  Company Number: AU-ABBOTT-13P-008-1051729-00

PATIENT
  Age: 77 Year
  Sex: Male

DRUGS (2)
  1. LUCRIN DEPOT [Suspect]
     Indication: PRODUCT USED FOR UNKNOWN INDICATION
     Dates: start: 20110430, end: 20120930
  2. PREDNISONE [Concomitant]
     Indication: PRODUCT USED FOR UNKNOWN INDICATION

REACTIONS (3)
  - Pneumonia [Recovered/Resolved]
  - Polymyalgia rheumatica [Recovering/Resolving]
  - Pneumonia [Recovered/Resolved]
